FAERS Safety Report 5219234-1 (Version None)
Quarter: 2007Q1

REPORT INFORMATION
  Report Type: 
  Country: None (occurrence: None)
  Receive Date: 20070122
  Receipt Date: 20070115
  Transmission Date: 20070707
  Serious: Yes (Hospitalization, Other)
  Sender: FDA-Public Use
  Company Number: HQWYE098202JAN07

PATIENT
  Age: 47 Year
  Sex: Male

DRUGS (5)
  1. RAPAMUNE [Suspect]
     Indication: PROPHYLAXIS AGAINST TRANSPLANT REJECTION
     Dosage: SEE IMAGE
     Route: 048
     Dates: start: 20061123, end: 20061215
  2. RAPAMUNE [Suspect]
     Indication: PROPHYLAXIS AGAINST TRANSPLANT REJECTION
     Dosage: SEE IMAGE
     Route: 048
     Dates: start: 20061216, end: 20061221
  3. RAPAMUNE [Suspect]
     Indication: PROPHYLAXIS AGAINST TRANSPLANT REJECTION
     Dosage: SEE IMAGE
     Route: 048
     Dates: start: 20061222
  4. SANDIMMUNE [Concomitant]
  5. SANDIMMUNE [Concomitant]

REACTIONS (2)
  - DRUG INEFFECTIVE [None]
  - LIVER TRANSPLANT REJECTION [None]
